FAERS Safety Report 9846925 (Version 1)
Quarter: 2014Q1

REPORT INFORMATION
  Report Type: Spontaneous
  Country: US (occurrence: US)
  Receive Date: 20140127
  Receipt Date: 20140127
  Transmission Date: 20141002
  Serious: Yes (Hospitalization, Other)
  Sender: FDA-Public Use
  Company Number: US-TEVA-457898USA

PATIENT
  Age: 70 Year
  Sex: Male

DRUGS (4)
  1. DILTIAZEM [Suspect]
     Indication: ATRIAL FIBRILLATION
     Dosage: 20MG (0.25 MG/KG) BOLUS
     Route: 040
  2. DILTIAZEM [Suspect]
     Indication: ATRIAL FIBRILLATION
     Dosage: 10 MG/H
     Route: 041
  3. ENOXAPARIN SODIUM [Concomitant]
     Route: 065
  4. PARACETAMOL [Concomitant]
     Route: 065

REACTIONS (2)
  - Hypotension [Recovered/Resolved]
  - Ischaemic hepatitis [Recovered/Resolved]
